FAERS Safety Report 7527117-7 (Version None)
Quarter: 2011Q2

REPORT INFORMATION
  Report Type: 
  Country: None (occurrence: None)
  Receive Date: 20110607
  Receipt Date: 20110524
  Transmission Date: 20111010
  Serious: Yes (Hospitalization)
  Sender: FDA-Public Use
  Company Number: NO-MYLANLABS-2011S1011091

PATIENT
  Age: 56 Year
  Sex: Female

DRUGS (10)
  1. METFORMIN HCL [Suspect]
     Indication: TYPE 2 DIABETES MELLITUS
     Route: 048
     Dates: start: 20060622
  2. ASPIRIN [Suspect]
     Indication: AORTIC ANEURYSM
     Route: 048
     Dates: start: 20051128
  3. GLIPIZIDE [Suspect]
     Indication: TYPE 2 DIABETES MELLITUS
     Dates: start: 20080624
  4. PINEX FORTE [Concomitant]
     Indication: PRODUCT USED FOR UNKNOWN INDICATION
     Dates: start: 20081022
  5. PLACEBO [Concomitant]
     Indication: TYPE 2 DIABETES MELLITUS
     Dates: start: 20080624
  6. IBUPROFEN [Suspect]
     Indication: GINGIVITIS
     Route: 048
     Dates: start: 20081215
  7. PARACET /00020001/ [Concomitant]
     Indication: PRODUCT USED FOR UNKNOWN INDICATION
     Dates: start: 20000601
  8. SIMVASTATIN [Concomitant]
     Indication: PRODUCT USED FOR UNKNOWN INDICATION
     Dates: start: 20060622
  9. SAXAGLIPTIN [Suspect]
     Indication: TYPE 2 DIABETES MELLITUS
     Dates: start: 20080624
  10. TRAMADOL HCL [Concomitant]
     Indication: PRODUCT USED FOR UNKNOWN INDICATION
     Dates: start: 20090401

REACTIONS (1)
  - GASTRIC ULCER [None]
